FAERS Safety Report 7430762-0 (Version None)
Quarter: 2011Q2

REPORT INFORMATION
  Report Type: 
  Country: None (occurrence: None)
  Receive Date: 20110419
  Receipt Date: 20110419
  Transmission Date: 20111010
  Serious: No
  Sender: FDA-Public Use
  Company Number: None

PATIENT
  Age: 63 Year
  Sex: Male

DRUGS (5)
  1. REVLIMID [Suspect]
     Indication: MULTIPLE MYELOMA
     Dosage: 5MG QOD ORALLY
     Route: 048
     Dates: start: 20100701, end: 20110301
  2. TERAZOSIN HCL [Concomitant]
  3. ATENOLOL [Concomitant]
  4. PROCRIT [Concomitant]
  5. DEXAMETHASONE [Concomitant]

REACTIONS (3)
  - MUSCLE SPASMS [None]
  - PANCYTOPENIA [None]
  - DRUG INEFFECTIVE [None]
